FAERS Safety Report 16219289 (Version 2)
Quarter: 2019Q2

REPORT INFORMATION
  Report Type: Report from Study
  Country: MX (occurrence: MX)
  Receive Date: 20190419
  Receipt Date: 20190508
  Transmission Date: 20190711
  Serious: Yes (Death, Hospitalization)
  Sender: FDA-Public Use
  Company Number: PHHY2019MX071913

PATIENT
  Age: 61 Year
  Sex: Female
  Weight: 54 kg

DRUGS (1)
  1. EXJADE [Suspect]
     Active Substance: DEFERASIROX
     Indication: PRODUCT USED FOR UNKNOWN INDICATION
     Dosage: 1000 MG, Q24H
     Route: 048
     Dates: start: 20180731, end: 20190201

REACTIONS (30)
  - Sepsis [Fatal]
  - Mean cell haemoglobin increased [Unknown]
  - Blood glucose increased [Unknown]
  - Blood bicarbonate decreased [Unknown]
  - Pneumonia [Fatal]
  - Headache [Unknown]
  - Syncope [Unknown]
  - Haemoglobin decreased [Unknown]
  - Haematocrit decreased [Unknown]
  - Neutrophil count decreased [Unknown]
  - Blood phosphorus increased [Unknown]
  - Base excess increased [Unknown]
  - Platelet count decreased [Unknown]
  - White blood cell count decreased [Unknown]
  - Blood chloride increased [Unknown]
  - Blood sodium increased [Unknown]
  - PCO2 decreased [Unknown]
  - Red cell distribution width increased [Unknown]
  - Cardiac arrest [Fatal]
  - Rales [Unknown]
  - Mean cell volume increased [Unknown]
  - Blood creatinine increased [Unknown]
  - Cerebrovascular accident [Unknown]
  - Generalised tonic-clonic seizure [Unknown]
  - Blood urea increased [Unknown]
  - Septic shock [Fatal]
  - Altered state of consciousness [Unknown]
  - Malaise [Unknown]
  - Red blood cell count decreased [Unknown]
  - Monocyte count increased [Unknown]

NARRATIVE: CASE EVENT DATE: 20190309
